FAERS Safety Report 5929792-7 (Version None)
Quarter: 2008Q4

REPORT INFORMATION
  Report Type: 
  Country: None (occurrence: None)
  Receive Date: 20081021
  Receipt Date: 20081006
  Transmission Date: 20090506
  Serious: Yes (Hospitalization)
  Sender: FDA-Public Use
  Company Number: 2008BI020339

PATIENT
  Age: 49 Year
  Sex: Female
  Weight: 147.419 kg

DRUGS (3)
  1. TYSABRI [Suspect]
     Indication: MULTIPLE SCLEROSIS
     Dosage: SEE IMAGE
     Route: 042
     Dates: start: 20070301, end: 20070401
  2. TYSABRI [Suspect]
     Indication: MULTIPLE SCLEROSIS
     Dosage: SEE IMAGE
     Route: 042
     Dates: start: 20070401, end: 20070601
  3. TYSABRI [Suspect]
     Indication: MULTIPLE SCLEROSIS
     Dosage: SEE IMAGE
     Route: 042
     Dates: start: 20070701

REACTIONS (5)
  - DEEP VEIN THROMBOSIS [None]
  - ERYTHEMA [None]
  - PRURITUS [None]
  - SWELLING [None]
  - URTICARIA [None]
